FAERS Safety Report 6156236-5 (Version None)
Quarter: 2009Q2

REPORT INFORMATION
  Report Type: 
  Country: None (occurrence: None)
  Receive Date: 20090415
  Receipt Date: 20090406
  Transmission Date: 20091009
  Serious: Yes (Disabling)
  Sender: FDA-Public Use
  Company Number: GB-WYE-H08942309

PATIENT
  Age: 48 Year
  Sex: Male

DRUGS (3)
  1. AMIODARONE HCL [Suspect]
     Indication: HYPERTROPHIC CARDIOMYOPATHY
     Route: 048
     Dates: start: 20060201
  2. BISOPROLOL [Concomitant]
     Indication: HYPERTROPHIC CARDIOMYOPATHY
     Dosage: 75 MG, FREQUENCY UNSPECIFIED
     Route: 048
     Dates: start: 20051201
  3. LANSOPRAZOLE [Concomitant]
     Indication: GASTROOESOPHAGEAL REFLUX DISEASE
     Dosage: 15 MG, FREQUENCY UNSPECIFIED
     Route: 048
     Dates: start: 20070201

REACTIONS (1)
  - ORCHITIS [None]
